FAERS Safety Report 7524070-7 (Version None)
Quarter: 2011Q2

REPORT INFORMATION
  Report Type: 
  Country: None (occurrence: None)
  Receive Date: 20110605
  Receipt Date: 20110531
  Transmission Date: 20111010
  Serious: Yes (Hospitalization)
  Sender: FDA-Public Use
  Company Number: US-BRISTOL-MYERS SQUIBB COMPANY-15771819

PATIENT
  Age: 64 Year
  Sex: Female
  Weight: 56 kg

DRUGS (3)
  1. CISPLATIN [Suspect]
     Indication: OESOPHAGEAL CARCINOMA
     Dosage: LAST ADMINS ON 17MAY11-TOTAL DOSE 40MG
     Dates: start: 20110503
  2. TAXOL [Suspect]
     Indication: OESOPHAGEAL CARCINOMA
     Dosage: LAST ADMINS ON 17MAY11;TOTAL DOSE: 80 MG
     Dates: start: 20110503
  3. LEXAPRO [Concomitant]

REACTIONS (3)
  - ABDOMINAL PAIN [None]
  - BACK PAIN [None]
  - NAUSEA [None]
